FAERS Safety Report 26219083 (Version 1)
Quarter: 2025Q4

REPORT INFORMATION
  Report Type: Spontaneous
  Country: EU (occurrence: EU)
  Receive Date: 20251231
  Receipt Date: 20251231
  Transmission Date: 20260117
  Serious: Yes (Other)
  Sender: BRISTOL-MYERS SQUIBB COMPANY
  Company Number: None

PATIENT
  Age: 50 Year
  Sex: Female
  Weight: 98 kg

DRUGS (1)
  1. ORENCIA [Suspect]
     Active Substance: ABATACEPT
     Indication: Rheumatoid arthritis
     Dosage: 2 DOSES TOTALY ADMINISTERED
     Route: 058
     Dates: start: 20251022, end: 20251029

REACTIONS (2)
  - Peripheral vein thrombosis [Recovering/Resolving]
  - Thrombophlebitis [Recovering/Resolving]

NARRATIVE: CASE EVENT DATE: 20251030
